FAERS Safety Report 5389869-4 (Version None)
Quarter: 2007Q3

REPORT INFORMATION
  Report Type: 
  Country: None (occurrence: None)
  Receive Date: 20070718
  Receipt Date: 20070711
  Transmission Date: 20080115
  Serious: Yes (Hospitalization, Other)
  Sender: FDA-Public Use
  Company Number: PHEH2007US09821

PATIENT
  Sex: Female

DRUGS (4)
  1. DIOVAN HCT [Suspect]
     Indication: HYPERTENSION
     Dosage: UNK, QD
     Route: 048
     Dates: start: 20070101, end: 20070201
  2. ACIPHEX [Concomitant]
     Dosage: UNK, UNK
  3. TIAZAC [Concomitant]
     Dosage: UNK, UNK
  4. PAXIL [Concomitant]
     Dosage: UNK, UNK

REACTIONS (3)
  - ELECTROLYTE DEPLETION [None]
  - MENTAL STATUS CHANGES [None]
  - VOMITING [None]
